FAERS Safety Report 8605612-7 (Version None)
Quarter: 2012Q3

REPORT INFORMATION
  Report Type: 
  Country: None (occurrence: None)
  Receive Date: 20120820
  Receipt Date: 20120814
  Transmission Date: 20120928
  Serious: No
  Sender: FDA-Public Use
  Company Number: US-PFIZER INC-2012198786

PATIENT
  Age: 88 Year
  Sex: Male
  Weight: 77.1 kg

DRUGS (4)
  1. LEVOTHYROXINE [Concomitant]
     Dosage: 175 UG, UNK
  2. IBUPROFEN [Concomitant]
     Dosage: 800MG THREE TIMES A DAY
  3. ATORVASTATIN CALCIUM [Suspect]
     Indication: BLOOD CHOLESTEROL INCREASED
     Dosage: 40 MG, ONCE A DAY
     Route: 048
     Dates: start: 20120601, end: 20120101
  4. ATORVASTATIN CALCIUM [Suspect]
     Dosage: 40 MG, ONCE A DAY
     Route: 048
     Dates: start: 20120101, end: 20120808

REACTIONS (3)
  - MUSCULOSKELETAL PAIN [None]
  - ARTHRALGIA [None]
  - INSOMNIA [None]
